FAERS Safety Report 10528131 (Version 1)
Quarter: 2014Q4

REPORT INFORMATION
  Report Type: Spontaneous
  Country: GB (occurrence: GB)
  Receive Date: 20141020
  Receipt Date: 20141020
  Transmission Date: 20150528
  Serious: Yes (Hospitalization)
  Sender: FDA-Public Use
  Company Number: GB-TEVA-514547ISR

PATIENT
  Age: 93 Year

DRUGS (2)
  1. LOSARTAN [Suspect]
     Active Substance: LOSARTAN
     Dates: end: 20140928
  2. BENDROFLUMETHIAZIDE [Suspect]
     Active Substance: BENDROFLUMETHIAZIDE
     Dates: end: 20140928

REACTIONS (3)
  - Malaise [Unknown]
  - Acute kidney injury [Not Recovered/Not Resolved]
  - Sepsis [Unknown]
